FAERS Safety Report 8923229 (Version 1)
Quarter: 2012Q4

REPORT INFORMATION
  Report Type: Spontaneous
  Country: DE (occurrence: None)
  Receive Date: 20121115
  Receipt Date: 20121115
  Transmission Date: 20130627
  Serious: Yes (Hospitalization)
  Sender: FDA-Public Use
  Company Number: DE-DEXPHARM-20121490

PATIENT
  Age: 65 Year
  Sex: Female

DRUGS (8)
  1. LAMICTAL [Suspect]
     Indication: EPILEPSY
     Route: 048
     Dates: start: 201112
  2. ASS [Concomitant]
  3. FORTECORTIN [Concomitant]
  4. HYDROCHLOROTHIAZIDE [Suspect]
     Indication: HYPERTENSION
     Route: 048
     Dates: end: 20120111
  5. OMEPRAZOLE [Suspect]
     Route: 048
     Dates: end: 20120113
  6. KEPPRA [Concomitant]
  7. LOSARTAN [Concomitant]
  8. RIVOTRIL [Concomitant]

REACTIONS (1)
  - Agranulocytosis [None]
